FAERS Safety Report 15658592 (Version 3)
Quarter: 2023Q1

REPORT INFORMATION
  Report Type: Spontaneous
  Country: TN (occurrence: TN)
  Receive Date: 20181126
  Receipt Date: 20230102
  Transmission Date: 20230417
  Serious: Yes (Life-Threatening, Hospitalization)
  Sender: FDA-Public Use
  Company Number: TN-MLMSERVICE-20181115-1485488-1

PATIENT
  Age: 53 Year
  Sex: Female

DRUGS (13)
  1. DICLOFENAC [Suspect]
     Active Substance: DICLOFENAC
     Indication: Back pain
     Route: 065
     Dates: start: 201801, end: 2018
  2. AMOXICILLIN [Suspect]
     Active Substance: AMOXICILLIN
     Indication: Pyrexia
     Route: 065
     Dates: start: 2018, end: 2018
  3. AMOXICILLIN [Suspect]
     Active Substance: AMOXICILLIN
     Indication: Cough
  4. AMOXICILLIN [Suspect]
     Active Substance: AMOXICILLIN
     Indication: Lymphadenopathy
  5. ACETAMINOPHEN [Suspect]
     Active Substance: ACETAMINOPHEN
     Indication: Pyrexia
     Route: 065
     Dates: start: 2018, end: 2018
  6. ACETAMINOPHEN [Suspect]
     Active Substance: ACETAMINOPHEN
     Indication: Cough
  7. ACETAMINOPHEN [Suspect]
     Active Substance: ACETAMINOPHEN
     Indication: Lymphadenopathy
  8. MEFENAMIC ACID [Suspect]
     Active Substance: MEFENAMIC ACID
     Indication: Pyrexia
     Route: 065
     Dates: start: 2018, end: 2018
  9. MEFENAMIC ACID [Suspect]
     Active Substance: MEFENAMIC ACID
     Indication: Cough
  10. MEFENAMIC ACID [Suspect]
     Active Substance: MEFENAMIC ACID
     Indication: Lymphadenopathy
  11. CETIRIZINE [Suspect]
     Active Substance: CETIRIZINE HYDROCHLORIDE
     Indication: Pyrexia
     Route: 065
     Dates: start: 2018
  12. CETIRIZINE [Suspect]
     Active Substance: CETIRIZINE HYDROCHLORIDE
     Indication: Cough
  13. CETIRIZINE [Suspect]
     Active Substance: CETIRIZINE HYDROCHLORIDE
     Indication: Lymphadenopathy

REACTIONS (1)
  - Drug reaction with eosinophilia and systemic symptoms [Recovered/Resolved]

NARRATIVE: CASE EVENT DATE: 20180101
